FAERS Safety Report 9225089 (Version 1)
Quarter: 2013Q2

REPORT INFORMATION
  Report Type: Spontaneous
  Country: US (occurrence: None)
  Receive Date: 20130410
  Receipt Date: 20130410
  Transmission Date: 20140414
  Serious: Yes (Life-Threatening, Other)
  Sender: FDA-Public Use
  Company Number: None

PATIENT
  Age: 60 Year
  Sex: Male
  Weight: 95.26 kg

DRUGS (1)
  1. LYRICA 75MG PFIZER [Suspect]
     Indication: DIABETES MELLITUS
     Route: 048
     Dates: start: 20120906, end: 20120907

REACTIONS (2)
  - Fall [None]
  - Injury [None]
